FAERS Safety Report 24381252 (Version 2)
Quarter: 2024Q4

REPORT INFORMATION
  Report Type: Spontaneous
  Country: IN (occurrence: IN)
  Receive Date: 20241001
  Receipt Date: 20241119
  Transmission Date: 20250115
  Serious: Yes (Other)
  Sender: RANBAXY
  Company Number: IN-SUN PHARMACEUTICAL INDUSTRIES LTD-2024R1-470284

PATIENT
  Age: 14 Year
  Sex: Male

DRUGS (8)
  1. DIVALPROEX SODIUM [Suspect]
     Active Substance: DIVALPROEX SODIUM
     Indication: Psychotic symptom
     Dosage: 750 MILLIGRAM, DAILY
     Route: 065
  2. DIVALPROEX SODIUM [Suspect]
     Active Substance: DIVALPROEX SODIUM
     Indication: Manic symptom
  3. HALOPERIDOL [Suspect]
     Active Substance: HALOPERIDOL
     Indication: Manic symptom
     Dosage: 10 MILLIGRAM, DAILY
     Route: 065
  4. HALOPERIDOL [Suspect]
     Active Substance: HALOPERIDOL
     Indication: Psychotic symptom
  5. CARBAMAZEPINE [Concomitant]
     Active Substance: CARBAMAZEPINE
     Indication: Stevens-Johnson syndrome
     Dosage: 600 MILLIGRAM
     Route: 065
  6. ATOMOXETINE [Concomitant]
     Active Substance: ATOMOXETINE HYDROCHLORIDE
     Indication: Tic
     Dosage: 20 MILLIGRAM
     Route: 065
  7. FLUOXETINE [Concomitant]
     Active Substance: FLUOXETINE HYDROCHLORIDE
     Indication: Tic
     Dosage: 20 MILLIGRAM
     Route: 065
  8. RISPERIDONE [Concomitant]
     Active Substance: RISPERIDONE
     Indication: Tic
     Dosage: 2 MILLIGRAM
     Route: 065

REACTIONS (1)
  - Dystonia [Recovering/Resolving]
